FAERS Safety Report 16789239 (Version 1)
Quarter: 2019Q3

REPORT INFORMATION
  Report Type: Spontaneous
  Country: FR (occurrence: FR)
  Receive Date: 20190910
  Receipt Date: 20190910
  Transmission Date: 20191005
  Serious: Yes (Hospitalization, Other)
  Sender: FDA-Public Use
  Company Number: FR-BRISTOL-MYERS SQUIBB COMPANY-BMS-2019-085929

PATIENT
  Age: 71 Year
  Sex: Female
  Weight: 36 kg

DRUGS (3)
  1. YERVOY [Suspect]
     Active Substance: IPILIMUMAB
     Indication: CHEMOTHERAPY
     Dosage: 41 MILLIGRAM PER 8 WEEK
     Route: 041
     Dates: start: 20190131, end: 20190424
  2. OPDIVO [Suspect]
     Active Substance: NIVOLUMAB
     Indication: CHEMOTHERAPY
     Dosage: 240 MILLIGRAM PER 15 DAY
     Route: 041
     Dates: start: 20190131, end: 20190522
  3. ALIMTA [Suspect]
     Active Substance: PEMETREXED DISODIUM
     Indication: CHEMOTHERAPY
     Dosage: 680 MILLIGRAM, PER CYCLICAL
     Route: 042
     Dates: start: 20190801, end: 20190801

REACTIONS (4)
  - Eosinophilia [Recovering/Resolving]
  - Erysipelas [Recovering/Resolving]
  - Pruritus [Recovering/Resolving]
  - Off label use [Unknown]

NARRATIVE: CASE EVENT DATE: 20190815
